FAERS Safety Report 12765400 (Version 1)
Quarter: 2016Q3

REPORT INFORMATION
  Report Type: Spontaneous
  Country: None (occurrence: IT)
  Receive Date: 20160921
  Receipt Date: 20160921
  Transmission Date: 20161109
  Serious: Yes (Hospitalization)
  Sender: FDA-Public Use
  Company Number: IT-AUROBINDO-AUR-APL-2016-11520

PATIENT
  Age: 50 Year
  Sex: Female

DRUGS (3)
  1. LAMOTRIGINE. [Suspect]
     Active Substance: LAMOTRIGINE
     Indication: INTENTIONAL SELF-INJURY
     Route: 065
  2. CLONAZEPAM. [Suspect]
     Active Substance: CLONAZEPAM
     Indication: INTENTIONAL SELF-INJURY
     Route: 065
  3. RISPERIDONE. [Suspect]
     Active Substance: RISPERIDONE
     Indication: INTENTIONAL SELF-INJURY
     Route: 065

REACTIONS (4)
  - Intentional self-injury [Unknown]
  - Miosis [Unknown]
  - Sopor [Unknown]
  - Tremor [Unknown]

NARRATIVE: CASE EVENT DATE: 20160819
